FAERS Safety Report 5796715-3 (Version None)
Quarter: 2008Q3

REPORT INFORMATION
  Report Type: 
  Country: None (occurrence: None)
  Receive Date: 20080701
  Receipt Date: 20080618
  Transmission Date: 20090109
  Serious: Yes (Other)
  Sender: FDA-Public Use
  Company Number: US-MERCK-0806USA07706

PATIENT
  Age: 78 Year
  Sex: Male

DRUGS (3)
  1. PRINIVIL [Suspect]
     Route: 048
     Dates: start: 20050101
  2. HYDRODIURIL [Suspect]
     Route: 048
     Dates: start: 20050101
  3. ALDOMET [Suspect]
     Route: 048
     Dates: start: 20050101

REACTIONS (3)
  - CARDIAC DISORDER [None]
  - HYPERTENSION [None]
  - HYPOTENSION [None]
